FAERS Safety Report 6372735-5 (Version None)
Quarter: 2009Q3

REPORT INFORMATION
  Report Type: 
  Country: None (occurrence: None)
  Receive Date: 20090924
  Receipt Date: 20090624
  Transmission Date: 20100115
  Serious: Yes (Hospitalization)
  Sender: FDA-Public Use
  Company Number: US-ASTRAZENECA-2008UW24336

PATIENT
  Age: 44 Year
  Sex: Female
  Weight: 104.8 kg

DRUGS (4)
  1. SEROQUEL [Suspect]
     Indication: BIPOLAR DISORDER
     Dosage: 200 MG, 300 MG
     Route: 048
     Dates: start: 20040101, end: 20060901
  2. SEROQUEL [Suspect]
     Indication: DEPRESSION
     Dosage: 200 MG, 300 MG
     Route: 048
     Dates: start: 20040101, end: 20060901
  3. FLUOXETINE [Concomitant]
     Dates: start: 20070101
  4. TRAZODONE HCL [Concomitant]
     Dates: start: 20070101

REACTIONS (3)
  - DIABETES MELLITUS [None]
  - MENTAL DISORDER [None]
  - PNEUMONIA [None]
